FAERS Safety Report 7027039-4 (Version None)
Quarter: 2010Q3

REPORT INFORMATION
  Report Type: 
  Country: None (occurrence: None)
  Receive Date: 20100929
  Receipt Date: 20100914
  Transmission Date: 20110219
  Serious: Yes (Other)
  Sender: FDA-Public Use
  Company Number: GR-003688

PATIENT
  Age: 57 Year
  Sex: Female
  Weight: 59 kg

DRUGS (2)
  1. DDAVP [Suspect]
     Indication: DIABETES INSIPIDUS
  2. MINIRIN [Suspect]
     Indication: DIABETES INSIPIDUS

REACTIONS (3)
  - BLOOD SODIUM DECREASED [None]
  - HEADACHE [None]
  - POLYURIA [None]
